FAERS Safety Report 7240741-4 (Version None)
Quarter: 2011Q1

REPORT INFORMATION
  Report Type: 
  Country: None (occurrence: None)
  Receive Date: 20110124
  Receipt Date: 20110117
  Transmission Date: 20110831
  Serious: Yes (Hospitalization)
  Sender: FDA-Public Use
  Company Number: CA-US-EMD SERONO, INC.-7036716

PATIENT
  Sex: Female

DRUGS (2)
  1. REBIF [Suspect]
     Indication: MULTIPLE SCLEROSIS
     Dates: start: 20010209, end: 20060424
  2. REBIF [Suspect]

REACTIONS (5)
  - EATING DISORDER [None]
  - ASTHENIA [None]
  - INTESTINAL OBSTRUCTION [None]
  - WEIGHT DECREASED [None]
  - MULTIPLE SCLEROSIS RELAPSE [None]
